FAERS Safety Report 8615168-0 (Version None)
Quarter: 2012Q3

REPORT INFORMATION
  Report Type: 
  Country: None (occurrence: None)
  Receive Date: 20120823
  Receipt Date: 20120820
  Transmission Date: 20120928
  Serious: Yes (Hospitalization, Other)
  Sender: FDA-Public Use
  Company Number: US-PFIZER INC-2010021636

PATIENT
  Age: 71 Year
  Sex: Female
  Weight: 107.48 kg

DRUGS (23)
  1. TOVIAZ [Suspect]
     Indication: BLADDER DISORDER
  2. TYLENOL [Concomitant]
     Indication: PAIN
     Dosage: 500 MG OR 650 MG, AS NEEDED
  3. VITAMIN B6 [Concomitant]
     Dosage: 100 MG, DAILY
  4. LYRICA [Suspect]
     Indication: DIABETIC NEUROPATHY
     Dosage: 150 MG, 2X/DAY
  5. VITAMIN D [Concomitant]
     Dosage: 400 IU, 3X/DAY
  6. ATENOLOL [Concomitant]
     Dosage: 25 MG, DAILY AT BEDTIME
  7. PROPYLENE GLYCOL [Concomitant]
     Dosage: UNK, 2X/DAY
  8. PREMARIN [Suspect]
     Dosage: UNK
  9. FLUOXETINE [Concomitant]
     Dosage: 20 MG, DAILY
  10. GLIMEPIRIDE [Concomitant]
     Dosage: 1 MG, DAILY
  11. OMEPRAZOLE [Concomitant]
     Dosage: 20 MG, DAILY
  12. LIPITOR [Suspect]
     Dosage: 40 MG (1/2 TABLET) AT BEDTIME
     Route: 048
  13. TOVIAZ [Suspect]
     Indication: RENAL DISORDER
     Dosage: 4 MG, DAILY AT BEDTIME
  14. ASCORBIC ACID [Concomitant]
     Dosage: 1000 MG, DAILY
  15. CALCIUM [Concomitant]
     Dosage: 500 MG, 2X/DAY
  16. CELEBREX [Concomitant]
     Dosage: UNK
     Dates: end: 20120607
  17. LYSINE [Concomitant]
     Dosage: 500 MG, DAILY
  18. FISH OIL [Concomitant]
     Dosage: 1000 MG, 2X/DAY
  19. VISION FORMULA [Concomitant]
     Dosage: 1000 IU, DAILY
  20. FEXOFENADINE [Concomitant]
     Dosage: 180 MG, DAILY
  21. LEVOTHROID [Concomitant]
     Dosage: 100 UG, DAILY
  22. DIOVAN [Concomitant]
     Dosage: 320 MG, DAILY
  23. SUPER VITAMIN B COMPLEX [Concomitant]
     Dosage: 100 MG, DAILY

REACTIONS (8)
  - HEAD INJURY [None]
  - CONCUSSION [None]
  - DEHYDRATION [None]
  - HYPERTENSION [None]
  - MALAISE [None]
  - URINARY TRACT INFECTION [None]
  - OEDEMA PERIPHERAL [None]
  - FALL [None]
